FAERS Safety Report 7869397-4 (Version None)
Quarter: 2011Q4

REPORT INFORMATION
  Report Type: 
  Country: None (occurrence: None)
  Receive Date: 20111028
  Receipt Date: 20111028
  Transmission Date: 20120403
  Serious: Yes (Other)
  Sender: FDA-Public Use
  Company Number: None

PATIENT
  Sex: Male

DRUGS (1)
  1. SCOPE [Suspect]
     Dosage: 1 APPLIC, 1 ONLY, ORAL
     Route: 048
     Dates: start: 20110802, end: 20110802

REACTIONS (4)
  - THROAT TIGHTNESS [None]
  - PRODUCT QUALITY ISSUE [None]
  - URTICARIA [None]
  - DYSPNOEA [None]
